FAERS Safety Report 5598112-2 (Version None)
Quarter: 2008Q1

REPORT INFORMATION
  Report Type: 
  Country: None (occurrence: None)
  Receive Date: 20080116
  Receipt Date: 20080102
  Transmission Date: 20080703
  Serious: Yes (Hospitalization)
  Sender: FDA-Public Use
  Company Number: A-US2007-17345

PATIENT
  Age: 38 Year
  Sex: Male

DRUGS (9)
  1. VENTAVIS [Suspect]
     Indication: SYSTEMIC SCLEROSIS
  2. TRACLEER [Suspect]
     Indication: SYSTEMIC SCLEROSIS
     Dosage: 62.5 MG, BID, ORAL; 125 MG, BID,
     Route: 048
  3. NIFEDIPINE [Concomitant]
  4. CLOPIDOGREL [Concomitant]
  5. LOSARTAN POTASSIUM [Concomitant]
  6. FLUOXETINE [Concomitant]
  7. LANSOPRAZOLE [Concomitant]
  8. METHYLPREDNISOLONE [Concomitant]
  9. CYCLOPHOSPHAMIDE [Concomitant]

REACTIONS (11)
  - ANTINUCLEAR ANTIBODY POSITIVE [None]
  - CYANOSIS [None]
  - DISEASE PROGRESSION [None]
  - DISEASE RECURRENCE [None]
  - GANGRENE [None]
  - GASTRITIS [None]
  - ISCHAEMIA [None]
  - NO THERAPEUTIC RESPONSE [None]
  - RED BLOOD CELL SEDIMENTATION RATE INCREASED [None]
  - SCLERODACTYLIA [None]
  - TELANGIECTASIA [None]
